FAERS Safety Report 5913785-X (Version None)
Quarter: 2008Q4

REPORT INFORMATION
  Report Type: 
  Country: None (occurrence: None)
  Receive Date: 20081007
  Receipt Date: 20080922
  Transmission Date: 20090506
  Serious: Yes (Hospitalization)
  Sender: FDA-Public Use
  Company Number: 2008001683

PATIENT
  Age: 66 Year
  Sex: Male

DRUGS (9)
  1. ERLOTINIB (ERLOTINIB) (TABLET) (ERLOTINIB) [Suspect]
     Indication: LUNG SQUAMOUS CELL CARCINOMA STAGE UNSPECIFIED
     Dosage: (150 MG, QD) , ORAL
     Route: 048
     Dates: start: 20080606, end: 20080707
  2. OXYCONTIN [Concomitant]
  3. NOVAMIN (PROCHLOPERAZINE) [Concomitant]
  4. ADONA (CARBAZOCHROME SODIUM SULFONATE) [Concomitant]
  5. TRANSAMIN (TRANEXAMIC ACID) [Concomitant]
  6. LASIX [Concomitant]
  7. PURSENNID (SENNA LEAF) [Concomitant]
  8. CLARITHROMYCIN [Concomitant]
  9. ALDACTONE [Concomitant]

REACTIONS (16)
  - ACCIDENT [None]
  - ACID FAST BACILLI INFECTION [None]
  - ALANINE AMINOTRANSFERASE INCREASED [None]
  - ASCITES [None]
  - ASPARTATE AMINOTRANSFERASE INCREASED [None]
  - BLOOD BILIRUBIN INCREASED [None]
  - CARDIAC FAILURE [None]
  - DISEASE PROGRESSION [None]
  - HEPATIC FUNCTION ABNORMAL [None]
  - HYPONATRAEMIA [None]
  - INTERSTITIAL LUNG DISEASE [None]
  - LIVER DISORDER [None]
  - MALIGNANT PLEURAL EFFUSION [None]
  - PNEUMONIA KLEBSIELLA [None]
  - PRURITUS [None]
  - STAPHYLOCOCCAL INFECTION [None]
